FAERS Safety Report 15004368 (Version 1)
Quarter: 2018Q2

REPORT INFORMATION
  Report Type: Spontaneous
  Country: US (occurrence: US)
  Receive Date: 20180613
  Receipt Date: 20180613
  Transmission Date: 20180711
  Serious: No
  Sender: FDA-Public Use
  Company Number: US-PFIZER INC-2018206630

PATIENT
  Age: 56 Year
  Sex: Female

DRUGS (3)
  1. LEVOTHYROXIN [Concomitant]
     Active Substance: LEVOTHYROXINE
     Dosage: 50 UG, UNK
  2. EXEMESTANE. [Suspect]
     Active Substance: EXEMESTANE
     Indication: BREAST CANCER
     Dosage: 25 MG, UNK
     Dates: start: 20160817, end: 20160920
  3. ACYCLOVIR. [Concomitant]
     Active Substance: ACYCLOVIR
     Dosage: 400 MG, UNK

REACTIONS (4)
  - Eye swelling [Not Recovered/Not Resolved]
  - Rash [Not Recovered/Not Resolved]
  - Arthralgia [Not Recovered/Not Resolved]
  - Pruritus [Not Recovered/Not Resolved]

NARRATIVE: CASE EVENT DATE: 201608
